FAERS Safety Report 6245105-8 (Version None)
Quarter: 2009Q2

REPORT INFORMATION
  Report Type: 
  Country: None (occurrence: None)
  Receive Date: 20090625
  Receipt Date: 20090615
  Transmission Date: 20091009
  Serious: Yes (Hospitalization, Other)
  Sender: FDA-Public Use
  Company Number: CH-JNJFOC-20090200439

PATIENT
  Age: 25 Year
  Sex: Female

DRUGS (17)
  1. RISPERDAL [Suspect]
     Route: 048
  2. RISPERDAL [Suspect]
     Route: 048
  3. RISPERDAL [Suspect]
     Route: 048
  4. RISPERDAL [Suspect]
     Route: 048
  5. RISPERDAL [Suspect]
     Indication: SCHIZOPHRENIA, PARANOID TYPE
     Route: 048
  6. LEPONEX [Suspect]
     Route: 048
  7. LEPONEX [Suspect]
     Route: 048
  8. LEPONEX [Suspect]
     Route: 048
  9. LEPONEX [Suspect]
     Route: 048
  10. LEPONEX [Suspect]
     Route: 048
  11. LEPONEX [Suspect]
     Route: 048
  12. LEPONEX [Suspect]
     Route: 048
  13. LEPONEX [Suspect]
     Route: 048
  14. LEPONEX [Suspect]
     Route: 048
  15. LEPONEX [Suspect]
     Route: 048
  16. LEPONEX [Suspect]
     Indication: DRUG USE FOR UNKNOWN INDICATION
     Route: 048
  17. FEMINAC [Interacting]
     Indication: CONTRACEPTION
     Route: 048

REACTIONS (5)
  - DRUG INTERACTION [None]
  - HOSPITALISATION [None]
  - ORTHOSTATIC HYPOTENSION [None]
  - SEDATION [None]
  - SINUS TACHYCARDIA [None]
